FAERS Safety Report 19382286 (Version 1)
Quarter: 2021Q2

REPORT INFORMATION
  Report Type: Spontaneous
  Country: US (occurrence: US)
  Receive Date: 20210607
  Receipt Date: 20210607
  Transmission Date: 20210717
  Serious: No
  Sender: FDA-Public Use
  Company Number: US-ALKERMES INC.-ALK-2021-002877

PATIENT
  Sex: Female

DRUGS (1)
  1. VIVITROL [Suspect]
     Active Substance: NALTREXONE
     Indication: ALCOHOLISM
     Dosage: 380 MILLIGRAM, Q28D
     Route: 030
     Dates: start: 20210430

REACTIONS (5)
  - Vomiting [Unknown]
  - Somnolence [Unknown]
  - Influenza like illness [Unknown]
  - Pyrexia [Unknown]
  - Pain [Unknown]

NARRATIVE: CASE EVENT DATE: 2021
